FAERS Safety Report 11757143 (Version 1)
Quarter: 2015Q4

REPORT INFORMATION
  Report Type: Spontaneous
  Country: US (occurrence: US)
  Receive Date: 20151120
  Receipt Date: 20151120
  Transmission Date: 20160304
  Serious: Yes (Other)
  Sender: FDA-Public Use
  Company Number: US-THE MEDICINES COMPANY-US-MDCO-15-00490

PATIENT
  Age: 68 Year
  Sex: Female

DRUGS (4)
  1. HEPARIN [Suspect]
     Active Substance: HEPARIN SODIUM
     Indication: THROMBOSIS PROPHYLAXIS
     Dosage: NOT REPORTED
  2. SURGIFOAM [Suspect]
     Active Substance: GELATIN\THROMBIN HUMAN
     Indication: HAEMOSTASIS
     Dosage: NOT REPORTED
  3. HEPARIN [Suspect]
     Active Substance: HEPARIN SODIUM
     Dosage: NOT REPORTED
     Route: 042
  4. RECOTHROM [Suspect]
     Active Substance: SODIUM CHLORIDE\THROMBIN ALFA
     Indication: HAEMOSTASIS
     Dosage: NOT REPORTED

REACTIONS (5)
  - Off label use [Recovered/Resolved]
  - Hypotension [Recovered/Resolved]
  - Pulmonary embolism [Recovered/Resolved]
  - Pneumoretroperitoneum [Recovered/Resolved]
  - Post procedural complication [None]
